FAERS Safety Report 9734015 (Version 1)
Quarter: 2013Q4

REPORT INFORMATION
  Report Type: Spontaneous
  Country: RO (occurrence: RO)
  Receive Date: 20131205
  Receipt Date: 20131205
  Transmission Date: 20140711
  Serious: Yes (Other)
  Sender: FDA-Public Use
  Company Number: RO-ACTAVIS-2013-21936

PATIENT
  Age: 38 Year
  Sex: Female

DRUGS (6)
  1. CYCLOPHOSPHAMIDE (UNKNOWN) [Suspect]
     Indication: LUPUS NEPHRITIS
     Dosage: MONTHLY PULSES FOR 6 MONTHS
     Route: 065
     Dates: start: 200801
  2. METHYLPREDNISOLONE (UNKNOWN) [Suspect]
     Indication: LUPUS NEPHRITIS
     Dosage: MONTHLY PULSES FOR 6 MONTHS
     Route: 065
     Dates: start: 200801
  3. ISONIAZID [Concomitant]
     Indication: DISSEMINATED TUBERCULOSIS
     Dosage: UNK
     Route: 065
  4. PYRAZINAMIDE [Concomitant]
     Indication: DISSEMINATED TUBERCULOSIS
     Dosage: UNK
     Route: 065
  5. ETHAMBUTOL [Concomitant]
     Indication: DISSEMINATED TUBERCULOSIS
     Dosage: UNK
     Route: 065
  6. RIFAMPICIN [Concomitant]
     Indication: DISSEMINATED TUBERCULOSIS
     Dosage: UNK
     Route: 065

REACTIONS (1)
  - Pancytopenia [Unknown]
